FAERS Safety Report 24091080 (Version 1)
Quarter: 2024Q3

REPORT INFORMATION
  Report Type: Spontaneous
  Country: US (occurrence: None)
  Receive Date: 20240712
  Receipt Date: 20240712
  Transmission Date: 20241016
  Serious: Yes (Hospitalization)
  Sender: Public
  Company Number: None

PATIENT
  Age: 71 Year
  Sex: Male

DRUGS (11)
  1. SKYRIZI [Suspect]
     Active Substance: RISANKIZUMAB-RZAA
     Indication: Inflammation
     Dosage: FREQUENCY : MONTHLY;?
     Route: 058
     Dates: start: 20240131
  2. MULTIVITAMIN ADULTS [Concomitant]
  3. PREDNISONE [Concomitant]
  4. REPATHA [Concomitant]
  5. TAMSULOSIN [Concomitant]
  6. BYSTOLIC [Concomitant]
  7. BYSTOLIC [Concomitant]
  8. DULOXETINE [Concomitant]
  9. FOLIC ACID [Concomitant]
  10. GABAPENTIN [Concomitant]
  11. LISINOPRIL [Concomitant]

REACTIONS (2)
  - Hypotension [None]
  - Pneumonia viral [None]

NARRATIVE: CASE EVENT DATE: 20240701
